FAERS Safety Report 17352418 (Version 1)
Quarter: 2020Q1

REPORT INFORMATION
  Report Type: Spontaneous
  Country: TR (occurrence: TR)
  Receive Date: 20200130
  Receipt Date: 20200130
  Transmission Date: 20200409
  Serious: Yes (Hospitalization, Other)
  Sender: FDA-Public Use
  Company Number: TR-MICRO LABS LIMITED-ML2020-00283

PATIENT
  Age: 52 Year
  Sex: Male

DRUGS (4)
  1. LEVETIRACETAM. [Suspect]
     Active Substance: LEVETIRACETAM
     Dosage: 1500MG PER DAY 2 MONTHS PREVIOUSLY
  2. LEVETIRACETAM. [Suspect]
     Active Substance: LEVETIRACETAM
     Indication: SEIZURE
     Dosage: TWICE DAILY
  3. LEVETIRACETAM. [Suspect]
     Active Substance: LEVETIRACETAM
     Dosage: PER DAY
  4. PHENYTOIN. [Concomitant]
     Active Substance: PHENYTOIN
     Indication: EPILEPSY
     Dosage: 300MG PER DAY

REACTIONS (2)
  - Hypomania [Recovering/Resolving]
  - Bipolar disorder [Recovering/Resolving]
